APPROVED DRUG PRODUCT: NAVSTEL
Active Ingredient: CALCIUM CHLORIDE; DEXTROSE; MAGNESIUM CHLORIDE; OXIGLUTATIONE; POTASSIUM CHLORIDE; SODIUM BICARBONATE; SODIUM CHLORIDE; SODIUM PHOSPHATE
Strength: 0.154MG/ML;0.92MG/ML;0.2MG/ML;0.184MG/ML;0.38MG/ML;2.1MG/ML;7.14MG/ML;0.42MG/ML
Dosage Form/Route: SOLUTION;IRRIGATION
Application: N022193 | Product #001
Applicant: ALCON PHARMACEUTICALS LTD
Approved: Jul 24, 2008 | RLD: No | RS: No | Type: DISCN